FAERS Safety Report 10717897 (Version 2)
Quarter: 2015Q1

REPORT INFORMATION
  Report Type: Spontaneous
  Country: US (occurrence: US)
  Receive Date: 20150116
  Receipt Date: 20150307
  Transmission Date: 20150721
  Serious: No
  Sender: FDA-Public Use
  Company Number: US-009507513-1501USA005179

PATIENT
  Sex: Female
  Weight: 77.98 kg

DRUGS (1)
  1. OXYTROL FOR WOMEN [Suspect]
     Active Substance: OXYBUTYNIN
     Indication: INCONTINENCE
     Dosage: 1 DF, UNKNOWN
     Route: 062
     Dates: start: 201408

REACTIONS (4)
  - Application site irritation [Unknown]
  - Application site pruritus [Unknown]
  - Application site erythema [Recovering/Resolving]
  - Rash [Recovering/Resolving]
